FAERS Safety Report 4446341-3 (Version None)
Quarter: 2004Q3

REPORT INFORMATION
  Report Type: 
  Country: None (occurrence: None)
  Receive Date: 20040910
  Receipt Date: 20040518
  Transmission Date: 20050211
  Serious: Yes (Hospitalization)
  Sender: FDA-Public Use
  Company Number: FR-BRISTOL-MYERS SQUIBB COMPANY-12589776

PATIENT
  Age: 69 Year
  Sex: Male
  Weight: 80 kg

DRUGS (6)
  1. APROVEL TABS [Suspect]
     Indication: HYPERTENSION
     Route: 048
     Dates: start: 19990615
  2. PLAVIX [Suspect]
     Indication: ARTERITIS
     Dosage: 15/06/1994-01/12/2003 (113 MONTHS); DOSE 75MG/DAY.  01/12/2003-22/12/2003 (22 DAYS); DOSE 150MG/DAY.
     Route: 048
     Dates: start: 19940615, end: 20031222
  3. TRANDATE [Suspect]
     Indication: HYPERTENSION
     Route: 048
     Dates: start: 19990615
  4. TAHOR [Suspect]
     Indication: LIPID METABOLISM DISORDER
     Route: 048
     Dates: start: 19950615, end: 20040114
  5. OMEPRAZOLE [Suspect]
     Indication: ABDOMINAL PAIN
     Route: 048
     Dates: start: 20010615, end: 20040114
  6. BUFLOMEDIL [Suspect]
     Route: 048

REACTIONS (3)
  - CONTUSION [None]
  - PETECHIAE [None]
  - THROMBOCYTOPENIA [None]
